FAERS Safety Report 5308579-2 (Version None)
Quarter: 2007Q2

REPORT INFORMATION
  Report Type: 
  Country: None (occurrence: None)
  Receive Date: 20070423
  Receipt Date: 20070423
  Transmission Date: 20071010
  Serious: Yes (Hospitalization, Other)
  Sender: FDA-Public Use
  Company Number: None

PATIENT
  Age: 27 Year
  Sex: Female
  Weight: 111.1313 kg

DRUGS (1)
  1. ENBREL [Suspect]
     Indication: ARTHRITIS
     Dosage: 50MG ONCE A WEEK SQ
     Route: 058
     Dates: start: 20070105, end: 20070401

REACTIONS (10)
  - ASTHMA [None]
  - EAR INFECTION [None]
  - FATIGUE [None]
  - HEADACHE [None]
  - MALAISE [None]
  - PAIN [None]
  - PHARYNGITIS [None]
  - PHARYNGOLARYNGEAL PAIN [None]
  - PNEUMONIA [None]
  - SINUSITIS [None]
